FAERS Safety Report 8909775 (Version 1)
Quarter: 2012Q4

REPORT INFORMATION
  Report Type: 
  Country: US (occurrence: US)
  Receive Date: 20121115
  Receipt Date: 20121115
  Transmission Date: 20130627
  Serious: Yes (Hospitalization)
  Sender: FDA-Public Use
  Company Number: US-PFIZER INC-2012285382

PATIENT
  Age: 43 Year
  Sex: Female
  Weight: 49.89 kg

DRUGS (4)
  1. PRISTIQ [Suspect]
     Indication: DEPRESSION
     Dosage: 100 mg, daily
     Route: 048
     Dates: start: 200909
  2. ATIVAN [Concomitant]
     Indication: ANXIETY
     Dosage: 1 mg, as needed
  3. AMBIEN [Concomitant]
     Indication: INSOMNIA
     Dosage: 10 mg, daily (at bed time)
  4. METROGEL [Concomitant]
     Dosage: UNK

REACTIONS (1)
  - Intestinal obstruction [Recovered/Resolved]
